FAERS Safety Report 5132901-3 (Version None)
Quarter: 2006Q4

REPORT INFORMATION
  Report Type: 
  Country: None (occurrence: None)
  Receive Date: 20061023
  Receipt Date: 20060905
  Transmission Date: 20070319
  Serious: Yes (Life-Threatening, Hospitalization)
  Sender: FDA-Public Use
  Company Number: PL-AVENTIS-200619226GDDC

PATIENT
  Age: 41 Year
  Sex: Female
  Weight: 125 kg

DRUGS (3)
  1. ARAVA [Suspect]
     Indication: RHEUMATOID ARTHRITIS
     Route: 048
     Dates: start: 20050416, end: 20060821
  2. DICLAC [Concomitant]
     Indication: RHEUMATOID ARTHRITIS
     Route: 048
     Dates: start: 20000101
  3. TIALORID [Concomitant]
     Indication: HYPERTENSION
     Dosage: DOSE: UNK
     Route: 048
     Dates: start: 20050415

REACTIONS (1)
  - OVARIAN CANCER [None]
